FAERS Safety Report 5256047-9 (Version None)
Quarter: 2007Q1

REPORT INFORMATION
  Report Type: 
  Country: None (occurrence: None)
  Receive Date: 20070306
  Receipt Date: 20070227
  Transmission Date: 20070707
  Serious: Yes (Death)
  Sender: FDA-Public Use
  Company Number: PHBS2007IL03419

PATIENT
  Age: 82 Year
  Sex: Female

DRUGS (2)
  1. RADIOLABELLED OCTREOTIDE [Suspect]
     Indication: CARCINOID TUMOUR
     Dates: start: 20070201
  2. SANDOSTATIN LAR [Suspect]
     Indication: CARCINOID TUMOUR
     Dosage: 30 MG/DAY
     Dates: start: 20040201, end: 20070101

REACTIONS (1)
  - SEPSIS [None]
